FAERS Safety Report 4499252-1 (Version None)
Quarter: 2004Q4

REPORT INFORMATION
  Report Type: 
  Country: None (occurrence: None)
  Receive Date: 20041111
  Receipt Date: 20041108
  Transmission Date: 20050328
  Serious: Yes (Hospitalization)
  Sender: FDA-Public Use
  Company Number: PHNU2004DE03785

PATIENT
  Age: 70 Year
  Sex: Male

DRUGS (4)
  1. LUDIOMIL [Suspect]
     Indication: MAJOR DEPRESSION
     Dosage: 25 MG/DAY
     Route: 048
     Dates: start: 20040415, end: 20040422
  2. LUDIOMIL [Suspect]
     Dosage: 50 MG/DAY
     Route: 048
     Dates: start: 20040423, end: 20040429
  3. LUDIOMIL [Suspect]
     Dosage: 75 MG/DAY
     Route: 048
     Dates: start: 20040430, end: 20040503
  4. AMINEURIN [Concomitant]
     Indication: MAJOR DEPRESSION
     Dosage: UNKNOWN
     Route: 048
     Dates: start: 20040504

REACTIONS (1)
  - EYELID OEDEMA [None]
